FAERS Safety Report 17577668 (Version 4)
Quarter: 2024Q1

REPORT INFORMATION
  Report Type: Spontaneous
  Country: US (occurrence: US)
  Receive Date: 20200324
  Receipt Date: 20240205
  Transmission Date: 20240410
  Serious: Yes (Hospitalization, Other)
  Sender: FDA-Public Use
  Company Number: US-GILEAD-2020-0456010

PATIENT
  Sex: Male
  Weight: 83.9 kg

DRUGS (49)
  1. VIREAD [Suspect]
     Active Substance: TENOFOVIR DISOPROXIL FUMARATE
     Indication: HIV infection
     Dosage: UNK
     Route: 048
     Dates: start: 2001
  2. VIREAD [Suspect]
     Active Substance: TENOFOVIR DISOPROXIL FUMARATE
     Dosage: UNK
     Route: 048
     Dates: start: 1998, end: 2001
  3. TRUVADA [Suspect]
     Active Substance: EMTRICITABINE\TENOFOVIR DISOPROXIL FUMARATE
     Indication: HIV infection
     Dosage: UNK
     Route: 048
     Dates: start: 2001
  4. TRUVADA [Suspect]
     Active Substance: EMTRICITABINE\TENOFOVIR DISOPROXIL FUMARATE
     Dosage: UNK
     Route: 048
     Dates: start: 2004, end: 2006
  5. TRUVADA [Suspect]
     Active Substance: EMTRICITABINE\TENOFOVIR DISOPROXIL FUMARATE
     Dosage: UNK
     Route: 048
     Dates: start: 20100106, end: 20160621
  6. TRUVADA [Suspect]
     Active Substance: EMTRICITABINE\TENOFOVIR DISOPROXIL FUMARATE
     Dosage: UNK
     Route: 048
     Dates: start: 2004, end: 20160621
  7. DESCOVY [Concomitant]
     Active Substance: EMTRICITABINE\TENOFOVIR ALAFENAMIDE FUMARATE
     Indication: HIV infection
     Dosage: UNK
     Route: 048
     Dates: start: 20161104, end: 20171120
  8. AMLODIPINE [Concomitant]
     Active Substance: AMLODIPINE BESYLATE
  9. FLOMAX [Concomitant]
     Active Substance: TAMSULOSIN HYDROCHLORIDE
  10. RAMIPRIL [Concomitant]
     Active Substance: RAMIPRIL
  11. PREZCOBIX [Concomitant]
     Active Substance: COBICISTAT\DARUNAVIR ETHANOLATE
  12. ASPIRIN [Concomitant]
     Active Substance: ASPIRIN
  13. AVODART [Concomitant]
     Active Substance: DUTASTERIDE
  14. ABACAVIR [Concomitant]
     Active Substance: ABACAVIR
  15. AMOXICILLIN [Concomitant]
     Active Substance: AMOXICILLIN
  16. AZITHROMYCIN [Concomitant]
     Active Substance: AZITHROMYCIN
  17. CAVERJECT [Concomitant]
     Active Substance: ALPROSTADIL
  18. CEFTRIAXONE [Concomitant]
     Active Substance: CEFTRIAXONE\CEFTRIAXONE SODIUM
  19. CIALIS [Concomitant]
     Active Substance: TADALAFIL
  20. CIPRO [Concomitant]
     Active Substance: CIPROFLOXACIN HYDROCHLORIDE
  21. DOXYCYCLINE [Concomitant]
     Active Substance: DOXYCYCLINE
  22. EDURANT [Concomitant]
     Active Substance: RILPIVIRINE HYDROCHLORIDE
  23. FINASTERIDE [Concomitant]
     Active Substance: FINASTERIDE
  24. FLUCONAZOLE [Concomitant]
     Active Substance: FLUCONAZOLE
  25. INTELENCE [Concomitant]
     Active Substance: ETRAVIRINE
  26. LEVOCARNITINE [Concomitant]
     Active Substance: LEVOCARNITINE
  27. NORVIR [Concomitant]
     Active Substance: RITONAVIR
  28. OMEPRAZOLE [Concomitant]
     Active Substance: OMEPRAZOLE
  29. TESTOSTERONE CYPIONATE [Concomitant]
     Active Substance: TESTOSTERONE CYPIONATE
  30. TRIUMEQ [Concomitant]
     Active Substance: ABACAVIR SULFATE\DOLUTEGRAVIR SODIUM\LAMIVUDINE
  31. VALACYCLOVIR HYDROCHLORIDE [Concomitant]
     Active Substance: VALACYCLOVIR HYDROCHLORIDE
  32. VIAGRA [Concomitant]
     Active Substance: SILDENAFIL CITRATE
  33. ZIAGEN [Concomitant]
     Active Substance: ABACAVIR SULFATE
  34. EPIVIR [Concomitant]
     Active Substance: LAMIVUDINE
  35. INVIRASE [Concomitant]
     Active Substance: SAQUINAVIR MESYLATE
  36. RESCRIPTOR [Concomitant]
     Active Substance: DELAVIRDINE MESYLATE
  37. RETROVIR [Concomitant]
     Active Substance: ZIDOVUDINE
  38. SUSTIVA [Concomitant]
     Active Substance: EFAVIRENZ
  39. TIVICAY [Concomitant]
     Active Substance: DOLUTEGRAVIR SODIUM
  40. VIDEX [Concomitant]
     Active Substance: DIDANOSINE
  41. VIRACEPT [Concomitant]
     Active Substance: NELFINAVIR MESYLATE
  42. ZERIT [Concomitant]
     Active Substance: STAVUDINE
  43. SULFAMETHOXAZOLE [Concomitant]
     Active Substance: SULFAMETHOXAZOLE
  44. TAMSULOSIN [Concomitant]
     Active Substance: TAMSULOSIN
  45. BACTRIM [Concomitant]
     Active Substance: SULFAMETHOXAZOLE\TRIMETHOPRIM
  46. ACYCLOVIR [Concomitant]
     Active Substance: ACYCLOVIR
  47. LEVAQUIN [Concomitant]
     Active Substance: LEVOFLOXACIN
  48. VITAMINS [Concomitant]
     Active Substance: VITAMINS
  49. BUDESONIDE [Concomitant]
     Active Substance: BUDESONIDE

REACTIONS (14)
  - Acute kidney injury [Recovered/Resolved]
  - Chronic kidney disease [Not Recovered/Not Resolved]
  - Osteoporosis [Not Recovered/Not Resolved]
  - Hand fracture [Unknown]
  - Bone density decreased [Unknown]
  - Osteopenia [Not Recovered/Not Resolved]
  - Pain [Not Recovered/Not Resolved]
  - Emotional distress [Not Recovered/Not Resolved]
  - Anxiety [Not Recovered/Not Resolved]
  - Depression [Not Recovered/Not Resolved]
  - Anhedonia [Not Recovered/Not Resolved]
  - Tooth fracture [Recovered/Resolved]
  - Hypertension [Not Recovered/Not Resolved]
  - Cardiac disorder [Not Recovered/Not Resolved]

NARRATIVE: CASE EVENT DATE: 19980101
